FAERS Safety Report 14083712 (Version 1)
Quarter: 2017Q4

REPORT INFORMATION
  Report Type: Spontaneous
  Country: HR (occurrence: HR)
  Receive Date: 20171013
  Receipt Date: 20171013
  Transmission Date: 20180321
  Serious: Yes (Other)
  Sender: FDA-Public Use
  Company Number: HR-FRESENIUS KABI-FK201708502

PATIENT
  Age: 65 Year
  Sex: Male
  Weight: 78 kg

DRUGS (9)
  1. ENSURE [Concomitant]
     Active Substance: AMINO ACIDS\DEXTROSE\ELECTROLYTES NOS\SOYBEAN OIL\VITAMINS
     Indication: PRODUCT USED FOR UNKNOWN INDICATION
     Dates: start: 20170720, end: 20170722
  2. IRINOTECAN 20 MG/ML CONCENTRATE FOR SOLUTION FOR INFUSION [Suspect]
     Active Substance: IRINOTECAN
     Indication: COLON CANCER
     Route: 042
     Dates: start: 20170720, end: 20170720
  3. OXALIPLATIN PLIVA [Interacting]
     Active Substance: OXALIPLATIN
     Indication: COLON CANCER
     Route: 042
     Dates: start: 20170720, end: 20170720
  4. ACIPAN [Concomitant]
     Active Substance: PANTOPRAZOLE SODIUM
     Indication: PRODUCT USED FOR UNKNOWN INDICATION
     Route: 048
     Dates: start: 20170720, end: 20170722
  5. AVASTIN [Interacting]
     Active Substance: BEVACIZUMAB
     Indication: COLON CANCER
     Route: 042
     Dates: start: 20170720, end: 20170720
  6. OXALIPLATIN PLIVA [Interacting]
     Active Substance: OXALIPLATIN
     Route: 042
     Dates: start: 20170720, end: 20170720
  7. FOLINIC ACID [Interacting]
     Active Substance: LEUCOVORIN
     Indication: COLON CANCER
     Route: 042
     Dates: start: 20170720, end: 20170720
  8. FLUOROURACIL SANDOZ [Interacting]
     Active Substance: FLUOROURACIL
     Indication: COLON CANCER
     Route: 042
     Dates: start: 20170720, end: 20170720
  9. GLUFORMIN [Concomitant]
     Active Substance: METFORMIN HYDROCHLORIDE
     Indication: PRODUCT USED FOR UNKNOWN INDICATION
     Route: 048
     Dates: start: 20170720, end: 20170722

REACTIONS (3)
  - Dysphagia [Recovered/Resolved]
  - Oral herpes [Recovered/Resolved]
  - Aphthous ulcer [Recovered/Resolved]

NARRATIVE: CASE EVENT DATE: 20170723
